FAERS Safety Report 5701060-8 (Version None)
Quarter: 2008Q2

REPORT INFORMATION
  Report Type: 
  Country: None (occurrence: None)
  Receive Date: 20080410
  Receipt Date: 20080401
  Transmission Date: 20081010
  Serious: Yes (Death, Other)
  Sender: FDA-Public Use
  Company Number: US-PURDUE-USA_2008_0031808

PATIENT
  Age: 32 Year
  Sex: Male

DRUGS (1)
  1. OXYCONTIN [Suspect]
     Indication: PAIN

REACTIONS (7)
  - EXSANGUINATION [None]
  - INJURY [None]
  - INTERNAL INJURY [None]
  - JUDGEMENT IMPAIRED [None]
  - LIVER INJURY [None]
  - OVERDOSE [None]
  - ROAD TRAFFIC ACCIDENT [None]
